FAERS Safety Report 7901175-X (Version None)
Quarter: 2011Q4

REPORT INFORMATION
  Report Type: 
  Country: None (occurrence: None)
  Receive Date: 20111108
  Receipt Date: 20111102
  Transmission Date: 20120403
  Serious: Yes (Other)
  Sender: FDA-Public Use
  Company Number: FR-PFIZER INC-2011225084

PATIENT
  Sex: Female

DRUGS (2)
  1. ZOLOFT [Suspect]
     Indication: PAIN
  2. ZOLOFT [Suspect]
     Indication: DEPRESSION
     Dosage: UNK
     Dates: end: 20111027

REACTIONS (3)
  - HALLUCINATION, AUDITORY [None]
  - DRUG WITHDRAWAL SYNDROME [None]
  - THYROID DISORDER [None]
